FAERS Safety Report 6692532-0 (Version None)
Quarter: 2010Q2

REPORT INFORMATION
  Report Type: 
  Country: None (occurrence: None)
  Receive Date: 20100422
  Receipt Date: 20100414
  Transmission Date: 20101027
  Serious: Yes (Other)
  Sender: FDA-Public Use
  Company Number: DE-ROCHE-683631

PATIENT
  Sex: Male
  Weight: 89 kg

DRUGS (3)
  1. AVASTIN [Suspect]
     Indication: GLIOBLASTOMA
     Route: 042
     Dates: start: 20091113
  2. LEVETIRACETAM [Concomitant]
     Route: 048
     Dates: start: 20090430
  3. CARBAMAZEPINE [Concomitant]
     Dosage: INTAKE FOR YEARS
     Route: 048
     Dates: end: 20100201

REACTIONS (1)
  - GAMMA-GLUTAMYLTRANSFERASE INCREASED [None]
